FAERS Safety Report 16968628 (Version 2)
Quarter: 2019Q4

REPORT INFORMATION
  Report Type: Spontaneous
  Country: JP (occurrence: JP)
  Receive Date: 20191029
  Receipt Date: 20191119
  Transmission Date: 20200122
  Serious: Yes (Death, Life-Threatening, Other)
  Sender: FDA-Public Use
  Company Number: JP-TAKEDA-2019TJP011017

PATIENT
  Age: 80 Year
  Sex: Male
  Weight: 60 kg

DRUGS (8)
  1. NICORANDIL [Concomitant]
     Active Substance: NICORANDIL
     Indication: HYPERTENSION
     Dosage: 5 MILLIGRAM, TID
     Route: 048
     Dates: start: 20190414, end: 20190512
  2. NIFEDIPINE. [Concomitant]
     Active Substance: NIFEDIPINE
     Indication: HYPERTENSION
     Dosage: 20 MILLIGRAM, BID
     Route: 048
     Dates: start: 20190429, end: 20190512
  3. TAKECAB TABLETS 20MG [Suspect]
     Active Substance: VONOPRAZAN FUMURATE
     Indication: GASTRIC ULCER HAEMORRHAGE
     Dosage: 20 MILLIGRAM, QD
     Route: 048
     Dates: start: 20190423, end: 20190429
  4. TAKEPRON [Suspect]
     Active Substance: LANSOPRAZOLE
     Indication: GASTRIC ULCER HAEMORRHAGE
     Dosage: 30 MILLIGRAM, QD
     Route: 042
     Dates: start: 20190430, end: 20190510
  5. CALBLOCK [Concomitant]
     Active Substance: AZELNIDIPINE
     Indication: HYPERTENSION
     Dosage: 16 MILLIGRAM, QD
     Route: 048
     Dates: start: 20190514, end: 20190523
  6. TELMISARTAN. [Concomitant]
     Active Substance: TELMISARTAN
     Indication: HYPERTENSION
     Dosage: 40 MILLIGRAM, QD
     Route: 048
     Dates: start: 20190425, end: 20190523
  7. TAKECAB TABLETS 20MG [Suspect]
     Active Substance: VONOPRAZAN FUMURATE
     Dosage: 20 MILLIGRAM, QD
     Route: 048
     Dates: start: 20190514, end: 20190517
  8. BISOPROLOL FUMARATE. [Concomitant]
     Active Substance: BISOPROLOL FUMARATE
     Indication: HYPERTENSION
     Dosage: 2.5 MILLIGRAM, QD
     Route: 048
     Dates: start: 20190422, end: 20190529

REACTIONS (7)
  - Pneumonia staphylococcal [Unknown]
  - Shock haemorrhagic [Fatal]
  - Stevens-Johnson syndrome [Recovering/Resolving]
  - Gastric ulcer [Fatal]
  - Condition aggravated [Fatal]
  - Toxic epidermal necrolysis [Recovering/Resolving]
  - Epistaxis [Unknown]

NARRATIVE: CASE EVENT DATE: 20190510
